FAERS Safety Report 9059710 (Version 2)
Quarter: 2013Q2

REPORT INFORMATION
  Report Type: Spontaneous
  Country: JP (occurrence: JP)
  Receive Date: 20130212
  Receipt Date: 20130408
  Transmission Date: 20140414
  Serious: Yes (Life-Threatening, Other)
  Sender: FDA-Public Use
  Company Number: JP-BAYER-201010160BYL

PATIENT
  Age: 82 Year
  Sex: Male

DRUGS (2)
  1. NEXAVAR [Suspect]
     Indication: HEPATOCELLULAR CARCINOMA
     Dosage: 200 MG, QD
     Route: 048
     Dates: start: 20091222
  2. NEXAVAR [Suspect]
     Indication: HEPATOCELLULAR CARCINOMA
     Dosage: DAILY DOSE 400 MG
     Route: 048
     Dates: end: 20130314

REACTIONS (3)
  - Oesophageal carcinoma [Not Recovered/Not Resolved]
  - Pyrexia [Not Recovered/Not Resolved]
  - Diarrhoea [Recovering/Resolving]
